FAERS Safety Report 22055567 (Version 1)
Quarter: 2023Q1

REPORT INFORMATION
  Report Type: Spontaneous
  Country: CN (occurrence: None)
  Receive Date: 20230302
  Receipt Date: 20230302
  Transmission Date: 20230418
  Serious: Yes (Other)
  Sender: FDA-Public Use
  Company Number: CN-ROCHE-3296407

PATIENT
  Age: 61 Year
  Sex: Female

DRUGS (2)
  1. ACTEMRA [Suspect]
     Active Substance: TOCILIZUMAB
     Indication: Rheumatoid arthritis
     Route: 065
     Dates: start: 202210, end: 202212
  2. ACTEMRA [Suspect]
     Active Substance: TOCILIZUMAB
     Dosage: LAST INFUSION WAS ON 25/FEB/2023
     Route: 065
     Dates: start: 20230125

REACTIONS (2)
  - Rectal perforation [Unknown]
  - Stoma site infection [Recovering/Resolving]

NARRATIVE: CASE EVENT DATE: 20221201
